FAERS Safety Report 5635600-4 (Version None)
Quarter: 2008Q1

REPORT INFORMATION
  Report Type: 
  Country: None (occurrence: None)
  Receive Date: 20080222
  Receipt Date: 20080209
  Transmission Date: 20080703
  Serious: Yes (Other)
  Sender: FDA-Public Use
  Company Number: TR-ELI_LILLY_AND_COMPANY-TR200802004492

PATIENT
  Age: 34 Year
  Sex: Female
  Weight: 95 kg

DRUGS (4)
  1. HUMULIN R [Suspect]
     Indication: DIABETES MELLITUS
     Dosage: 8 IU, EACH MORNING
     Route: 058
  2. HUMULIN R [Suspect]
     Dosage: 8 IU, DAILY (1/D)
     Route: 058
  3. HUMULIN R [Suspect]
     Dosage: 10 IU, EACH EVENING
     Route: 058
  4. HUMULIN N [Suspect]
     Indication: DIABETES MELLITUS
     Dosage: 10 IU, EACH EVENING
     Route: 058

REACTIONS (2)
  - ABORTION [None]
  - DRUG EXPOSURE DURING PREGNANCY [None]
